FAERS Safety Report 7303909-4 (Version None)
Quarter: 2011Q1

REPORT INFORMATION
  Report Type: 
  Country: None (occurrence: None)
  Receive Date: 20110221
  Receipt Date: 20110216
  Transmission Date: 20110831
  Serious: Yes (Death)
  Sender: FDA-Public Use
  Company Number: D0070325A

PATIENT
  Age: 43 Year
  Sex: Female

DRUGS (1)
  1. DERMOXIN [Suspect]
     Route: 061

REACTIONS (2)
  - INCORRECT DRUG ADMINISTRATION DURATION [None]
  - NEOPLASM MALIGNANT [None]
